FAERS Safety Report 7681312-5 (Version None)
Quarter: 2011Q3

REPORT INFORMATION
  Report Type: 
  Country: None (occurrence: None)
  Receive Date: 20110812
  Receipt Date: 20090821
  Transmission Date: 20111222
  Serious: Yes (Death, Other)
  Sender: FDA-Public Use
  Company Number: US-BAYER-200920331NA

PATIENT
  Sex: Male
  Weight: 63.039 kg

DRUGS (12)
  1. WARFARIN SODIUM [Concomitant]
  2. LISINOPRIL [Concomitant]
  3. GADOLINIUM IN UNSPECIFIED DRUG [Suspect]
     Dosage: UNK
     Dates: start: 20060612, end: 20060612
  4. METOPROLOL TARTRATE [Concomitant]
  5. FOSRENOL [Concomitant]
  6. ATENOLOL [Concomitant]
  7. EPOGEN [Concomitant]
  8. HEPARIN [Concomitant]
  9. OPTIMARK [Suspect]
     Dosage: UNK UNK, ONCE
     Route: 042
     Dates: start: 20060416, end: 20060416
  10. PHOSLO [Concomitant]
  11. MINOXIDIL [Concomitant]
  12. MAGNEVIST [Suspect]
     Indication: NUCLEAR MAGNETIC RESONANCE IMAGING
     Dosage: UNK
     Dates: start: 20060515, end: 20060515

REACTIONS (9)
  - SKIN INDURATION [None]
  - PULMONARY FIBROSIS [None]
  - MUSCULOSKELETAL STIFFNESS [None]
  - EXTREMITY CONTRACTURE [None]
  - OCULAR ICTERUS [None]
  - OEDEMA PERIPHERAL [None]
  - NEPHROGENIC SYSTEMIC FIBROSIS [None]
  - PAIN [None]
  - SKIN FIBROSIS [None]
